FAERS Safety Report 7387259-6 (Version None)
Quarter: 2011Q1

REPORT INFORMATION
  Report Type: 
  Country: None (occurrence: None)
  Receive Date: 20110331
  Receipt Date: 20110324
  Transmission Date: 20110831
  Serious: Yes (Death, Life-Threatening, Hospitalization)
  Sender: FDA-Public Use
  Company Number: FR-PFIZER INC-2011022945

PATIENT
  Age: 46 Year
  Sex: Female
  Weight: 51 kg

DRUGS (2)
  1. INNOHEP [Concomitant]
     Indication: SUPERIOR VENA CAVA SYNDROME
  2. SUTENT [Suspect]
     Indication: HEPATIC NEOPLASM MALIGNANT
     Dosage: 37.5 MG, 1X/DAY
     Route: 048
     Dates: start: 20101118, end: 20110117

REACTIONS (7)
  - CYTOLYTIC HEPATITIS [None]
  - ACUTE RESPIRATORY FAILURE [None]
  - RENAL FAILURE [None]
  - HEPATIC FAILURE [None]
  - STREPTOCOCCAL INFECTION [None]
  - THROMBOTIC MICROANGIOPATHY [None]
  - HAEMATOMA [None]
